FAERS Safety Report 10620307 (Version 3)
Quarter: 2014Q4

REPORT INFORMATION
  Report Type: Spontaneous
  Country: UA (occurrence: UA)
  Receive Date: 20141202
  Receipt Date: 20141215
  Transmission Date: 20150529
  Serious: Yes (Other)
  Sender: FDA-Public Use
  Company Number: UA-PFIZER INC-2014327919

PATIENT
  Sex: Male

DRUGS (3)
  1. ATORIS [Concomitant]
     Active Substance: ATORVASTATIN CALCIUM
     Dosage: 5 MG, UNK
     Dates: start: 2008, end: 2014
  2. ATORVASTATIN PFIZER [Suspect]
     Active Substance: ATORVASTATIN
     Dosage: 20 MG, UNK
     Dates: start: 2014, end: 201407
  3. ATORVASTATIN PFIZER [Suspect]
     Active Substance: ATORVASTATIN
     Dosage: 10 MG, UNK
     Dates: start: 20141015

REACTIONS (9)
  - Dizziness [Recovered/Resolved]
  - Muscle atrophy [Unknown]
  - Depression [Unknown]
  - Arthralgia [Unknown]
  - Oedema peripheral [Unknown]
  - Polyneuropathy [Unknown]
  - Blood pressure decreased [Unknown]
  - Anaemia [Unknown]
  - Loss of consciousness [Unknown]

NARRATIVE: CASE EVENT DATE: 201410
